FAERS Safety Report 6569267-8 (Version None)
Quarter: 2010Q1

REPORT INFORMATION
  Report Type: 
  Country: None (occurrence: None)
  Receive Date: 20100201
  Receipt Date: 20100201
  Transmission Date: 20100710
  Serious: Yes (Death, Hospitalization)
  Sender: FDA-Public Use
  Company Number: None

PATIENT
  Sex: Female
  Weight: 94.3 kg

DRUGS (3)
  1. CYTARABINE [Suspect]
     Dosage: 900 MG
     Dates: end: 20091221
  2. DAUNORUBICIN HCL [Suspect]
     Dosage: 320 MG
     Dates: end: 20091218
  3. ETOPOSIDE [Suspect]
     Dosage: 360 MG
     Dates: end: 20091218

REACTIONS (8)
  - ACUTE RESPIRATORY DISTRESS SYNDROME [None]
  - ATRIAL FIBRILLATION [None]
  - INTESTINAL ISCHAEMIA [None]
  - LOBAR PNEUMONIA [None]
  - RENAL FAILURE [None]
  - RESPIRATORY FAILURE [None]
  - SEPTIC SHOCK [None]
  - SUBARACHNOID HAEMORRHAGE [None]
